FAERS Safety Report 10345090 (Version 1)
Quarter: 2014Q3

REPORT INFORMATION
  Report Type: Spontaneous
  Country: US (occurrence: None)
  Receive Date: 20140724
  Receipt Date: 20140724
  Transmission Date: 20150326
  Serious: Yes (Hospitalization)
  Sender: FDA-Public Use
  Company Number: SYM-2014-23308

PATIENT
  Age: 56 Year
  Sex: Male

DRUGS (1)
  1. XENAZINE [Suspect]
     Active Substance: TETRABENAZINE
     Indication: DYSKINESIA
     Route: 048

REACTIONS (3)
  - Prescribed overdose [None]
  - Off label use [None]
  - Pneumonia [None]

NARRATIVE: CASE EVENT DATE: 20140713
